FAERS Safety Report 6601691-7 (Version None)
Quarter: 2010Q1

REPORT INFORMATION
  Report Type: 
  Country: None (occurrence: None)
  Receive Date: 20100225
  Receipt Date: 20100222
  Transmission Date: 20100710
  Serious: Yes (Death, Hospitalization)
  Sender: FDA-Public Use
  Company Number: FR-ROCHE-686795

PATIENT
  Sex: Male

DRUGS (21)
  1. ROCEPHIN [Suspect]
     Indication: DRUG USE FOR UNKNOWN INDICATION
     Dosage: FORM: POWDER FOR SOLUTION FOR INFUSION
     Route: 042
     Dates: start: 20091013, end: 20091019
  2. TARCEVA [Concomitant]
  3. SKENAN [Concomitant]
  4. ACTISKENAN [Concomitant]
  5. ARIXTRA [Concomitant]
  6. BECILAN [Concomitant]
  7. BENERVA [Concomitant]
  8. COMBIGAN [Concomitant]
  9. DIFFU K [Concomitant]
  10. DOLIPRANE [Concomitant]
  11. FUNGIZONE [Concomitant]
     Dosage: DRUG REPORTED: FUNGIZONE MOUTHWASH
  12. IPRATROPIUM [Concomitant]
  13. LANTUS [Concomitant]
  14. HUMALOG [Concomitant]
  15. LEXOMIL [Concomitant]
  16. ALBUTEROL [Concomitant]
  17. TRUSOPT [Concomitant]
  18. LOVENOX [Concomitant]
     Dates: start: 20091013, end: 20091019
  19. FLUCONAZOLE [Concomitant]
     Dates: start: 20091013, end: 20091020
  20. TIBERAL [Concomitant]
     Dates: start: 20091013, end: 20091020
  21. TRUSOPT [Concomitant]
     Dates: start: 20091013

REACTIONS (1)
  - THROMBOCYTOPENIC PURPURA [None]
